FAERS Safety Report 7908747-7 (Version None)
Quarter: 2011Q4

REPORT INFORMATION
  Report Type: 
  Country: None (occurrence: None)
  Receive Date: 20111111
  Receipt Date: 20111108
  Transmission Date: 20120403
  Serious: No
  Sender: FDA-Public Use
  Company Number: US-PFIZER INC-2011062239

PATIENT
  Sex: Female
  Weight: 117.91 kg

DRUGS (4)
  1. NEURONTIN [Suspect]
     Indication: MYELITIS TRANSVERSE
     Dosage: 100 MG, 3X/DAY
     Route: 048
     Dates: start: 20110317
  2. NORVASC [Suspect]
     Dosage: UNK
  3. BACLOFEN [Concomitant]
     Dosage: UNK
  4. METOPROLOL [Concomitant]
     Indication: HYPERTENSION
     Dosage: UNK

REACTIONS (2)
  - FLUID RETENTION [None]
  - JOINT SWELLING [None]
